FAERS Safety Report 14587370 (Version 1)
Quarter: 2018Q1

REPORT INFORMATION
  Report Type: Spontaneous
  Country: US (occurrence: US)
  Receive Date: 20180228
  Receipt Date: 20180228
  Transmission Date: 20180509
  Serious: Yes (Other)
  Sender: FDA-Public Use
  Company Number: None

PATIENT
  Age: 72 Year
  Sex: Female
  Weight: 81 kg

DRUGS (6)
  1. VITAMIN D [Concomitant]
     Active Substance: CHOLECALCIFEROL
  2. OXYCODONE [Concomitant]
     Active Substance: OXYCODONE
  3. CLARITIN [Concomitant]
     Active Substance: LORATADINE
  4. ESI [Concomitant]
  5. PRAVASTATIN SODIUM TABLETS, USP 40 MG [Suspect]
     Active Substance: PRAVASTATIN SODIUM
     Indication: BLOOD CHOLESTEROL INCREASED
     Dosage: ?          QUANTITY:1 TABLET(S);?
     Route: 048
     Dates: start: 20151215, end: 20171222
  6. BAYER ASPIRIN [Concomitant]
     Active Substance: ASPIRIN

REACTIONS (2)
  - Diplopia [None]
  - Hallucination [None]

NARRATIVE: CASE EVENT DATE: 20160412
